FAERS Safety Report 13706377 (Version 2)
Quarter: 2017Q3

REPORT INFORMATION
  Report Type: Spontaneous
  Country: US (occurrence: US)
  Receive Date: 20170630
  Receipt Date: 20170811
  Transmission Date: 20171127
  Serious: Yes (Hospitalization, Disabling, Other)
  Sender: FDA-Public Use
  Company Number: US-GLAXOSMITHKLINE-US2017100498

PATIENT
  Age: 51 Year
  Sex: Female
  Weight: 86.17 kg

DRUGS (1)
  1. NUCALA [Suspect]
     Active Substance: MEPOLIZUMAB
     Indication: ASTHMA
     Dosage: 100 MG, UNK
     Route: 042
     Dates: start: 201701, end: 20170503

REACTIONS (8)
  - Cough [Unknown]
  - Muscle twitching [Unknown]
  - Gait inability [Unknown]
  - Pain [Unknown]
  - Pyrexia [Unknown]
  - Productive cough [Unknown]
  - Dysstasia [Unknown]
  - Dyspnoea [Unknown]

NARRATIVE: CASE EVENT DATE: 20170418
